FAERS Safety Report 18042974 (Version 1)
Quarter: 2020Q3

REPORT INFORMATION
  Report Type: Spontaneous
  Country: US (occurrence: US)
  Receive Date: 20200717
  Receipt Date: 20200717
  Transmission Date: 20201103
  Serious: Yes (Hospitalization)
  Sender: FDA-Public Use
  Company Number: None

PATIENT
  Sex: Female

DRUGS (12)
  1. INVOKANA [Suspect]
     Active Substance: CANAGLIFLOZIN
  2. TIZANIDINE. [Suspect]
     Active Substance: TIZANIDINE
  3. ZESTRIL [Suspect]
     Active Substance: LISINOPRIL
  4. MELOXICAM. [Suspect]
     Active Substance: MELOXICAM
  5. METRONIDAZOL [Suspect]
     Active Substance: METRONIDAZOLE
  6. MOXIFLOXACIN. [Suspect]
     Active Substance: MOXIFLOXACIN
  7. CYMBALTA [Suspect]
     Active Substance: DULOXETINE HYDROCHLORIDE
  8. ZOCOR [Suspect]
     Active Substance: SIMVASTATIN
  9. DESONIDE. [Suspect]
     Active Substance: DESONIDE
  10. ZIRGAN [Suspect]
     Active Substance: GANCICLOVIR
  11. HUMIRA [Suspect]
     Active Substance: ADALIMUMAB
     Indication: PSORIASIS
     Dosage: ?          OTHER DOSE:1 PEN;?FREQUENCY: Q2WK?
     Route: 058
     Dates: start: 20190425
  12. ALPRAZOLAM. [Suspect]
     Active Substance: ALPRAZOLAM

REACTIONS (1)
  - Coronary artery occlusion [None]
